FAERS Safety Report 19000649 (Version 5)
Quarter: 2021Q3

REPORT INFORMATION
  Report Type: Report from Study
  Country: US (occurrence: US)
  Receive Date: 20210312
  Receipt Date: 20210911
  Transmission Date: 20211014
  Serious: No
  Sender: FDA-Public Use
  Company Number: NVSC2021US049833

PATIENT
  Sex: Female

DRUGS (2)
  1. KESIMPTA [Suspect]
     Active Substance: OFATUMUMAB
     Dosage: 20 MG
     Route: 058
     Dates: start: 20210226
  2. KESIMPTA [Suspect]
     Active Substance: OFATUMUMAB
     Indication: MULTIPLE SCLEROSIS
     Dosage: UNK
     Route: 065

REACTIONS (6)
  - Toothache [Unknown]
  - Stress [Unknown]
  - Joint swelling [Unknown]
  - Malaise [Unknown]
  - Arthralgia [Unknown]
  - Product storage error [Unknown]
